FAERS Safety Report 10090691 (Version 1)
Quarter: 2014Q2

REPORT INFORMATION
  Report Type: Spontaneous
  Country: US (occurrence: None)
  Receive Date: 20140417
  Receipt Date: 20140417
  Transmission Date: 20141212
  Serious: Yes (Other)
  Sender: FDA-Public Use
  Company Number: 201404045

PATIENT
  Age: 63 Year
  Sex: Male

DRUGS (2)
  1. TESTIM [Suspect]
     Indication: BLOOD TESTOSTERONE DECREASED
     Dates: start: 2006, end: 2014
  2. ANDROGEL [Suspect]
     Indication: BLOOD TESTOSTERONE DECREASED
     Dates: start: 2006, end: 2014

REACTIONS (5)
  - Emotional disorder [None]
  - Cerebrovascular accident [None]
  - Economic problem [None]
  - Marital problem [None]
  - Family stress [None]
